FAERS Safety Report 7623424-8 (Version None)
Quarter: 2011Q3

REPORT INFORMATION
  Report Type: 
  Country: None (occurrence: None)
  Receive Date: 20110720
  Receipt Date: 20110705
  Transmission Date: 20111222
  Serious: Yes (Other)
  Sender: FDA-Public Use
  Company Number: CA-SANOFI-AVENTIS-2011SA044342

PATIENT
  Age: 76 Year
  Sex: Male
  Weight: 94 kg

DRUGS (5)
  1. AMLODIPINE [Concomitant]
  2. WARFARIN SODIUM [Concomitant]
  3. DRONEDARONE HCL [Suspect]
     Indication: ATRIAL FIBRILLATION
     Route: 048
     Dates: start: 20110222
  4. RAMIPRIL [Concomitant]
  5. METFORMIN HCL [Concomitant]

REACTIONS (1)
  - CARDIAC FAILURE [None]
